FAERS Safety Report 19886988 (Version 1)
Quarter: 2021Q3

REPORT INFORMATION
  Report Type: Report from Study
  Country: US (occurrence: US)
  Receive Date: 20210927
  Receipt Date: 20210927
  Transmission Date: 20211014
  Serious: Yes (Hospitalization, Other)
  Sender: FDA-Public Use
  Company Number: US-TAKEDA-ALL1-2012-03692

PATIENT
  Age: 84 Year
  Sex: Male

DRUGS (3)
  1. VELAGLUCERASE ALFA [Suspect]
     Active Substance: VELAGLUCERASE ALFA
     Dosage: 2800 INTERNATIONAL UNIT, Q2WEEKS
     Route: 041
     Dates: start: 20110126
  2. VELAGLUCERASE ALFA [Suspect]
     Active Substance: VELAGLUCERASE ALFA
     Dosage: 2400 INTERNATIONAL UNIT, 2/MONTH
     Route: 042
     Dates: start: 20110126
  3. VELAGLUCERASE ALFA [Suspect]
     Active Substance: VELAGLUCERASE ALFA
     Indication: GAUCHER^S DISEASE
     Dosage: 2400 INTERNATIONAL UNIT, Q2WEEKS
     Route: 041
     Dates: start: 20110126

REACTIONS (2)
  - Myocardial infarction [Unknown]
  - Pneumonia [Recovered/Resolved]

NARRATIVE: CASE EVENT DATE: 20210830
